FAERS Safety Report 5905552-8 (Version None)
Quarter: 2008Q4

REPORT INFORMATION
  Report Type: 
  Country: None (occurrence: None)
  Receive Date: 20081001
  Receipt Date: 20081001
  Transmission Date: 20090506
  Serious: No
  Sender: FDA-Public Use
  Company Number: None

PATIENT
  Age: 96 Year
  Sex: Male

DRUGS (1)
  1. AMLODIPINE [Suspect]
     Dates: start: 20080418

REACTIONS (3)
  - ASTHENIA [None]
  - DIZZINESS [None]
  - WRONG DRUG ADMINISTERED [None]
